FAERS Safety Report 10778392 (Version 1)
Quarter: 2015Q1

REPORT INFORMATION
  Report Type: Spontaneous
  Country: US (occurrence: US)
  Receive Date: 20150209
  Receipt Date: 20150209
  Transmission Date: 20150721
  Serious: No
  Sender: FDA-Public Use
  Company Number: US-009507513-1501USA012024

PATIENT
  Age: 76 Year
  Sex: Female

DRUGS (1)
  1. FOSAMAX PLUS D [Suspect]
     Active Substance: ALENDRONATE SODIUM\CHOLECALCIFEROL
     Indication: BONE DENSITY ABNORMAL
     Dosage: ONE TABLET / ONCE WEEKLY
     Route: 048
     Dates: start: 2000

REACTIONS (2)
  - Musculoskeletal stiffness [Unknown]
  - Product packaging issue [Unknown]

NARRATIVE: CASE EVENT DATE: 201407
